FAERS Safety Report 6022431-9 (Version None)
Quarter: 2008Q4

REPORT INFORMATION
  Report Type: 
  Country: None (occurrence: None)
  Receive Date: 20081221
  Receipt Date: 20081221
  Transmission Date: 20090506
  Serious: Yes (Hospitalization)
  Sender: FDA-Public Use
  Company Number: None

PATIENT
  Age: 38 Year
  Sex: Female
  Weight: 63.5036 kg

DRUGS (1)
  1. LEVAQUIN [Suspect]
     Indication: PELVIC INFLAMMATORY DISEASE
     Dosage: 1 Q 500 MG PILL DAILY PO
     Route: 048
     Dates: start: 20070817, end: 20070821

REACTIONS (24)
  - ABDOMINAL PAIN [None]
  - ARRHYTHMIA [None]
  - ARTHRALGIA [None]
  - BACK PAIN [None]
  - CHONDROPATHY [None]
  - DISTURBANCE IN ATTENTION [None]
  - DRY EYE [None]
  - EXERCISE TOLERANCE DECREASED [None]
  - HALLUCINATION [None]
  - HEPATIC PAIN [None]
  - INSOMNIA [None]
  - IRRITABILITY [None]
  - JOINT CREPITATION [None]
  - MIDDLE INSOMNIA [None]
  - MOBILITY DECREASED [None]
  - MUSCLE CONTRACTIONS INVOLUNTARY [None]
  - MYALGIA [None]
  - NIGHTMARE [None]
  - PAIN IN EXTREMITY [None]
  - PARAESTHESIA [None]
  - PARAESTHESIA ORAL [None]
  - SLEEP DISORDER [None]
  - TENDON DISORDER [None]
  - TENDON PAIN [None]
